FAERS Safety Report 10384926 (Version 1)
Quarter: 2014Q3

REPORT INFORMATION
  Report Type: Spontaneous
  Country: IE (occurrence: IE)
  Receive Date: 20140814
  Receipt Date: 20140814
  Transmission Date: 20150326
  Serious: Yes (Hospitalization)
  Sender: FDA-Public Use
  Company Number: IE-AMGEN-IRLSP2014061266

PATIENT
  Age: 75 Year
  Sex: Female

DRUGS (2)
  1. ERIBULIN [Concomitant]
     Active Substance: ERIBULIN
  2. ARANESP [Suspect]
     Active Substance: DARBEPOETIN ALFA
     Indication: BREAST CANCER METASTATIC
     Dosage: 360 MUG, Q3WK
     Route: 058

REACTIONS (1)
  - Pyrexia [Unknown]
